FAERS Safety Report 8007234-8 (Version None)
Quarter: 2011Q4

REPORT INFORMATION
  Report Type: 
  Country: None (occurrence: None)
  Receive Date: 20111130
  Receipt Date: 20111113
  Transmission Date: 20120403
  Serious: Yes (Hospitalization)
  Sender: FDA-Public Use
  Company Number: OMX-2011-00035

PATIENT
  Age: 67 Year
  Sex: Male

DRUGS (2)
  1. EVICEL [Suspect]
     Indication: HAEMOSTASIS
     Dosage: 1 UNIT, ONCE, EPILESIONAL
     Dates: start: 20110903, end: 20110903
  2. APPLICATOR [Concomitant]

REACTIONS (4)
  - FEAR [None]
  - INCORRECT DRUG ADMINISTRATION DURATION [None]
  - POST PROCEDURAL HAEMATOMA [None]
  - ISCHAEMIA [None]
